FAERS Safety Report 11849200 (Version 1)
Quarter: 2015Q4

REPORT INFORMATION
  Report Type: Spontaneous
  Country: MY (occurrence: MY)
  Receive Date: 20151218
  Receipt Date: 20151218
  Transmission Date: 20160305
  Serious: Yes (Hospitalization, Other)
  Sender: FDA-Public Use
  Company Number: MY-BAYER-2015-485601

PATIENT
  Age: 25 Year
  Sex: Female

DRUGS (1)
  1. NIFEDIPINE. [Suspect]
     Active Substance: NIFEDIPINE
     Indication: TOCOLYSIS
     Route: 048

REACTIONS (7)
  - Endometritis [None]
  - Placenta accreta [None]
  - Maternal exposure during pregnancy [None]
  - Drug ineffective for unapproved indication [None]
  - Off label use [None]
  - Premature delivery [Recovered/Resolved]
  - Retained placenta or membranes [None]
